FAERS Safety Report 5714515-7 (Version None)
Quarter: 2008Q2

REPORT INFORMATION
  Report Type: 
  Country: None (occurrence: None)
  Receive Date: 20080423
  Receipt Date: 20080415
  Transmission Date: 20081010
  Serious: Yes (Hospitalization)
  Sender: FDA-Public Use
  Company Number: FR-AVENTIS-200811452FR

PATIENT
  Age: 51 Year
  Sex: Male

DRUGS (14)
  1. LOVENOX [Suspect]
     Indication: PULMONARY EMBOLISM
     Route: 058
     Dates: start: 20080125, end: 20080205
  2. LOVENOX [Suspect]
     Dates: start: 20080214, end: 20080225
  3. CLOZAPINE [Suspect]
     Indication: PSYCHOTIC DISORDER
     Dosage: DOSE: 250 TO 450 MG DAILY
     Route: 048
     Dates: start: 20060101, end: 20080128
  4. CLOZAPINE [Suspect]
     Dosage: DOSE: 250 TO 450 MG DAILY
     Route: 048
     Dates: start: 20080216, end: 20080225
  5. PREVISCAN                          /00789001/ [Suspect]
     Indication: PULMONARY EMBOLISM
     Route: 048
     Dates: start: 20080125
  6. GARDENALE                          /00023202/ [Concomitant]
     Indication: EPILEPSY
  7. TEGRETOL [Concomitant]
     Indication: EPILEPSY
     Route: 048
  8. DEPAKENE [Concomitant]
     Indication: EPILEPSY
     Route: 048
  9. OMEPRAZOLE [Concomitant]
     Indication: DRUG USE FOR UNKNOWN INDICATION
     Route: 048
  10. TENORMIN [Concomitant]
     Route: 048
  11. TRANSIPEG                          /00754501/ [Concomitant]
     Route: 048
  12. HEPARIN [Concomitant]
     Indication: PULMONARY EMBOLISM
     Route: 042
     Dates: start: 20080124, end: 20080124
  13. VITAMINE K1 [Concomitant]
     Dates: start: 20080201, end: 20080201
  14. CALCIPARINE [Concomitant]
     Dates: start: 20080206, end: 20080213

REACTIONS (3)
  - LEUKOPENIA [None]
  - NEUTROPENIA [None]
  - THROMBOCYTOPENIA [None]
